FAERS Safety Report 7538960-2 (Version None)
Quarter: 2011Q2

REPORT INFORMATION
  Report Type: 
  Country: None (occurrence: None)
  Receive Date: 20110610
  Receipt Date: 20110526
  Transmission Date: 20111010
  Serious: Yes (Other)
  Sender: FDA-Public Use
  Company Number: US-BAYER-201038096NA

PATIENT
  Age: 43 Year
  Sex: Female
  Weight: 68 kg

DRUGS (3)
  1. YASMIN [Suspect]
     Indication: ACNE
     Dosage: UNK
     Dates: start: 20040101, end: 20050101
  2. YAZ [Suspect]
     Indication: ACNE
  3. DROSPIRENONE AND ETHINYL ESTRADIOL [Suspect]
     Indication: ACNE
     Dosage: UNK
     Dates: start: 20090101, end: 20100101

REACTIONS (4)
  - INJURY [None]
  - PANCREATITIS [None]
  - PAIN [None]
  - CHOLECYSTITIS [None]
